FAERS Safety Report 24305025 (Version 1)
Quarter: 2024Q3

REPORT INFORMATION
  Report Type: Spontaneous
  Country: JP (occurrence: JP)
  Receive Date: 20240911
  Receipt Date: 20240911
  Transmission Date: 20241016
  Serious: Yes (Other)
  Sender: ACCORD
  Company Number: JP-MLMSERVICE-20240823-PI047867-00140-1

PATIENT
  Sex: Female

DRUGS (3)
  1. ETOPOSIDE [Suspect]
     Active Substance: ETOPOSIDE
     Indication: Leukaemia cutis
     Dosage: INITIAL COURSE OF CHEMOTHERAPY
  2. CYTARABINE [Suspect]
     Active Substance: CYTARABINE
     Indication: Leukaemia cutis
     Dosage: INITIAL COURSE OF CHEMOTHERAPY
  3. MITOXANTRONE [Suspect]
     Active Substance: MITOXANTRONE HYDROCHLORIDE
     Indication: Leukaemia cutis
     Dosage: INITIAL COURSE OF CHEMOTHERAPY

REACTIONS (1)
  - Pancytopenia [Recovering/Resolving]
